FAERS Safety Report 9763587 (Version 2)
Quarter: 2014Q1

REPORT INFORMATION
  Report Type: Spontaneous
  Country: US (occurrence: US)
  Receive Date: 20131216
  Receipt Date: 20140317
  Transmission Date: 20141002
  Serious: No
  Sender: FDA-Public Use
  Company Number: US-BIOGENIDEC-2013BI104568

PATIENT
  Age: 55 Year
  Sex: Female

DRUGS (14)
  1. TECFIDERA [Suspect]
     Indication: PRODUCT USED FOR UNKNOWN INDICATION
     Route: 048
  2. TECFIDERA [Suspect]
     Indication: PRODUCT USED FOR UNKNOWN INDICATION
     Route: 048
  3. TECFIDERA [Suspect]
     Indication: PRODUCT USED FOR UNKNOWN INDICATION
     Route: 048
     Dates: start: 201310
  4. AMPYRA [Concomitant]
     Indication: MYELOPATHY
     Dates: start: 201004
  5. AMPYRA [Concomitant]
     Indication: MYELOPATHY
     Dates: start: 201104
  6. AMPYRA [Concomitant]
     Indication: MYELOPATHY
     Route: 048
     Dates: start: 20130426
  7. VITAMIN D [Concomitant]
  8. VITAMIN B [Concomitant]
  9. VITAMIN C [Concomitant]
  10. ICAPS [Concomitant]
  11. REGLAN [Concomitant]
  12. PAXIL [Concomitant]
  13. ADVIL [Concomitant]
  14. BIOFLAVONOIDS [Concomitant]

REACTIONS (3)
  - Myalgia [Recovered/Resolved]
  - Flushing [Recovered/Resolved]
  - Erythema [Recovered/Resolved]
